FAERS Safety Report 25241355 (Version 1)
Quarter: 2025Q2

REPORT INFORMATION
  Report Type: Spontaneous
  Country: US (occurrence: US)
  Receive Date: 20250425
  Receipt Date: 20250425
  Transmission Date: 20250716
  Serious: No
  Sender: BIOMARIN
  Company Number: US-BIOMARINAP-US-2025-165405

PATIENT

DRUGS (16)
  1. VIMIZIM [Suspect]
     Active Substance: ELOSULFASE ALFA
     Indication: Mucopolysaccharidosis IV
     Dosage: 25 MILLIGRAM, QW
     Route: 042
  2. ACETAMINOPHEN [Concomitant]
     Active Substance: ACETAMINOPHEN
     Indication: Product used for unknown indication
  3. EPINEPHRINE [Concomitant]
     Active Substance: EPINEPHRINE
     Indication: Product used for unknown indication
  4. FAMOTIDINE [Concomitant]
     Active Substance: FAMOTIDINE
     Indication: Product used for unknown indication
  5. TYLENOL [Concomitant]
     Active Substance: ACETAMINOPHEN
     Indication: Product used for unknown indication
  6. HEPARIN [Concomitant]
     Active Substance: HEPARIN SODIUM
     Indication: Product used for unknown indication
  7. EPIPEN JR [Concomitant]
     Active Substance: EPINEPHRINE
     Indication: Product used for unknown indication
  8. BENADRYL ALLERGY [Concomitant]
     Active Substance: DIPHENHYDRAMINE HYDROCHLORIDE
     Indication: Product used for unknown indication
  9. DIPHENHYDRAMINE [Concomitant]
     Active Substance: DIPHENHYDRAMINE
     Indication: Product used for unknown indication
  10. DIPHENHYDRAMINE [Concomitant]
     Active Substance: DIPHENHYDRAMINE
     Indication: Product used for unknown indication
  11. DIPHENHYDRAMINE HYDROCHLORIDE [Concomitant]
     Active Substance: DIPHENHYDRAMINE HYDROCHLORIDE
     Indication: Product used for unknown indication
  12. Lmx [Concomitant]
     Indication: Product used for unknown indication
  13. SOLU-MEDROL [Concomitant]
     Active Substance: METHYLPREDNISOLONE SODIUM SUCCINATE
     Indication: Product used for unknown indication
  14. FERROUS SULFATE [Concomitant]
     Active Substance: FERROUS SULFATE
     Indication: Product used for unknown indication
  15. LIDOCAINE AND PRILOCAINE [Concomitant]
     Active Substance: LIDOCAINE\PRILOCAINE
     Indication: Product used for unknown indication
  16. LIDOCAINE AND PRILOCAINE [Concomitant]
     Active Substance: LIDOCAINE\PRILOCAINE
     Indication: Product used for unknown indication

REACTIONS (1)
  - Pyrexia [Unknown]
